FAERS Safety Report 5963082-1 (Version None)
Quarter: 2008Q4

REPORT INFORMATION
  Report Type: 
  Country: None (occurrence: None)
  Receive Date: 20081119
  Receipt Date: 20081002
  Transmission Date: 20090506
  Serious: No
  Sender: FDA-Public Use
  Company Number: WAES 0810USA00388

PATIENT
  Age: 71 Year
  Sex: Female

DRUGS (7)
  1. JANUVIA [Suspect]
     Indication: TYPE 2 DIABETES MELLITUS
     Dosage: 100 MG/DAILY/PO ; 50 MG/DAILY/PO
     Route: 048
     Dates: start: 20070101
  2. JANUVIA [Suspect]
     Indication: TYPE 2 DIABETES MELLITUS
     Dosage: 100 MG/DAILY/PO ; 50 MG/DAILY/PO
     Route: 048
     Dates: start: 20080925
  3. DIOVAN [Concomitant]
  4. GLUCOPHAGE [Concomitant]
  5. METANX [Concomitant]
  6. INSULIN [Concomitant]
  7. POTASSIUM (UNSPECIFIED) [Concomitant]

REACTIONS (4)
  - GINGIVAL PAIN [None]
  - GLOSSODYNIA [None]
  - SINUSITIS [None]
  - WRONG TECHNIQUE IN DRUG USAGE PROCESS [None]
